FAERS Safety Report 7300716-3 (Version None)
Quarter: 2011Q1

REPORT INFORMATION
  Report Type: 
  Country: None (occurrence: None)
  Receive Date: 20110103
  Receipt Date: 20100716
  Transmission Date: 20110831
  Serious: Yes (Life-Threatening)
  Sender: FDA-Public Use
  Company Number: US-004786

PATIENT
  Age: 25 Year
  Sex: Female
  Weight: 64 kg

DRUGS (3)
  1. PROHANCE [Suspect]
     Indication: BENIGN INTRACRANIAL HYPERTENSION
     Dosage: 17ML ONCE  INTRAVENOUS
     Route: 042
     Dates: start: 20100716, end: 20100716
  2. PROHANCE [Suspect]
     Indication: INTRACRANIAL PRESSURE INCREASED
     Dosage: 17ML ONCE  INTRAVENOUS
     Route: 042
     Dates: start: 20100716, end: 20100716
  3. PROHANCE [Suspect]
     Indication: ARTERIOGRAM CAROTID
     Dosage: 17ML ONCE  INTRAVENOUS
     Route: 042
     Dates: start: 20100716, end: 20100716

REACTIONS (6)
  - PHARYNGEAL OEDEMA [None]
  - FEELING HOT [None]
  - URTICARIA [None]
  - PRURITUS [None]
  - RASH MACULAR [None]
  - DYSPNOEA [None]
